FAERS Safety Report 16020013 (Version 1)
Quarter: 2019Q1

REPORT INFORMATION
  Report Type: Other
  Country: IT (occurrence: IT)
  Receive Date: 20190228
  Receipt Date: 20190228
  Transmission Date: 20190418
  Serious: Yes (Death)
  Sender: FDA-Public Use
  Company Number: IT-CELLTRION INC.-2019IT019072

PATIENT

DRUGS (10)
  1. LANTUS [Concomitant]
     Active Substance: INSULIN GLARGINE
  2. RETACRIT                           /00928305/ [Concomitant]
     Dosage: 4000 DOSAGE FORM
  3. LASIX [Concomitant]
     Active Substance: FUROSEMIDE
     Dosage: 50 MG
     Route: 048
  4. ARIXTRA [Concomitant]
     Active Substance: FONDAPARINUX SODIUM
     Dosage: 7.5 MG
  5. FERROFOLIN [Concomitant]
     Dosage: 5 MG
     Route: 048
  6. HUMALOG [Concomitant]
     Active Substance: INSULIN LISPRO
  7. REMSIMA [Suspect]
     Active Substance: INFLIXIMAB
     Indication: COLITIS ULCERATIVE
     Dosage: 300 MG, PER 1 CYCLE
     Route: 042
     Dates: start: 20180302, end: 20180611
  8. IDEOS [Concomitant]
     Active Substance: CALCIUM CARBONATE\CHOLECALCIFEROL
     Dosage: 1 DOSAGE FORM
  9. ASACOL [Concomitant]
     Active Substance: MESALAMINE
     Indication: COLITIS ULCERATIVE
     Dosage: 2400 MG
     Route: 048
  10. OMEPRAZEN                          /00661201/ [Concomitant]
     Active Substance: OMEPRAZOLE
     Dosage: 20 MG
     Route: 048

REACTIONS (1)
  - Pulmonary embolism [Fatal]

NARRATIVE: CASE EVENT DATE: 20180730
